FAERS Safety Report 12619468 (Version 1)
Quarter: 2016Q3

REPORT INFORMATION
  Report Type: Spontaneous
  Country: CN (occurrence: CN)
  Receive Date: 20160803
  Receipt Date: 20160803
  Transmission Date: 20161109
  Serious: Yes (Death, Other)
  Sender: FDA-Public Use
  Company Number: CN-JNJFOC-20160723794

PATIENT

DRUGS (2)
  1. INFLIXIMAB, RECOMBINANT [Suspect]
     Active Substance: INFLIXIMAB
     Indication: COLITIS ULCERATIVE
     Route: 042
  2. INFLIXIMAB, RECOMBINANT [Suspect]
     Active Substance: INFLIXIMAB
     Indication: CROHN^S DISEASE
     Route: 042

REACTIONS (9)
  - Haematochezia [Unknown]
  - Epstein-Barr virus infection [Fatal]
  - Pancreatitis acute [Unknown]
  - Cytomegalovirus infection [Fatal]
  - Histiocytosis haematophagic [Unknown]
  - Respiratory failure [Unknown]
  - Megacolon [Unknown]
  - Disseminated intravascular coagulation [Unknown]
  - Adverse event [Fatal]
